FAERS Safety Report 12382217 (Version 2)
Quarter: 2016Q2

REPORT INFORMATION
  Report Type: Report from Study
  Country: CO (occurrence: CO)
  Receive Date: 20160518
  Receipt Date: 20160520
  Transmission Date: 20160815
  Serious: Yes (Other)
  Sender: FDA-Public Use
  Company Number: CO-JNJFOC-20160515201

PATIENT
  Age: 58 Year
  Sex: Female
  Weight: 85 kg

DRUGS (2)
  1. RISPERDAL CONSTA [Suspect]
     Active Substance: RISPERIDONE
     Indication: BIPOLAR DISORDER
     Route: 030
     Dates: start: 20130313
  2. VALPROIC ACID. [Concomitant]
     Active Substance: VALPROIC ACID
     Route: 048

REACTIONS (3)
  - Aggression [Not Recovered/Not Resolved]
  - Hallucinations, mixed [Not Recovered/Not Resolved]
  - Poor personal hygiene [Not Recovered/Not Resolved]

NARRATIVE: CASE EVENT DATE: 20160213
